FAERS Safety Report 23596953 (Version 2)
Quarter: 2024Q2

REPORT INFORMATION
  Report Type: Spontaneous
  Country: US (occurrence: US)
  Receive Date: 20240305
  Receipt Date: 20240404
  Transmission Date: 20240716
  Serious: Yes (Hospitalization, Other)
  Sender: FDA-Public Use
  Company Number: US-SA-SAC20240305000162

PATIENT
  Age: 62 Year
  Sex: Female
  Weight: 56.24 kg

DRUGS (4)
  1. DUPIXENT [Suspect]
     Active Substance: DUPILUMAB
     Indication: Plasma cell myeloma
     Dosage: 300 MG, QOW
     Route: 058
     Dates: end: 202311
  2. LENALIDOMIDE [Suspect]
     Active Substance: LENALIDOMIDE
     Dosage: UNK
  3. HUMIRA [Concomitant]
     Active Substance: ADALIMUMAB
  4. SYNTHROID [Concomitant]
     Active Substance: LEVOTHYROXINE SODIUM

REACTIONS (7)
  - Avian influenza [Recovered/Resolved]
  - H1N1 influenza [Recovered/Resolved]
  - Respiratory syncytial virus infection [Recovered/Resolved]
  - Ear infection [Recovered/Resolved]
  - Urticaria [Unknown]
  - Pruritus [Unknown]
  - Drug effective for unapproved indication [Unknown]

NARRATIVE: CASE EVENT DATE: 20231101
